FAERS Safety Report 21748584 (Version 1)
Quarter: 2022Q4

REPORT INFORMATION
  Report Type: Spontaneous
  Country: DE (occurrence: DE)
  Receive Date: 20221219
  Receipt Date: 20221219
  Transmission Date: 20230113
  Serious: Yes (Congenital Anomaly)
  Sender: FDA-Public Use
  Company Number: DE-PHARMAAND-2022PHR00269

PATIENT
  Age: 1 Day
  Sex: Male
  Weight: 3.07 kg

DRUGS (4)
  1. PEGINTERFERON ALFA-2A [Suspect]
     Active Substance: PEGINTERFERON ALFA-2A
     Indication: Polycythaemia vera
     Dosage: 90 [?G/WK (BIS 45 ?G/2WKS ]/ DOSE REDUCTION AT GW 20
     Route: 064
     Dates: start: 20210510, end: 20220210
  2. PERTUSSIS VACCINE [Concomitant]
     Active Substance: PERTUSSIS VACCINE
  3. COMIRNATY MONOVALENT (BIONTECH/PFIZER) [Concomitant]
     Dosage: 3RD CORONA VACCINATION
     Dates: start: 20211130, end: 20211130
  4. COMIRNATY MONOVALENT (BIONTECH/PFIZER) [Concomitant]
     Dosage: SECOND CORONA VACCINATION
     Dates: start: 20210519, end: 20210519

REACTIONS (9)
  - Chordee [Unknown]
  - Post procedural haemorrhage [Unknown]
  - Congenital genital malformation male [Unknown]
  - Tethered cord syndrome [Unknown]
  - Congenital skin dimples [Unknown]
  - Infantile haemangioma [Recovering/Resolving]
  - Pyelocaliectasis [Unknown]
  - Hypospadias [Unknown]
  - Foetal exposure during pregnancy [Unknown]

NARRATIVE: CASE EVENT DATE: 20220201
